FAERS Safety Report 15760294 (Version 1)
Quarter: 2018Q4

REPORT INFORMATION
  Report Type: Spontaneous
  Country: US (occurrence: US)
  Receive Date: 20181224
  Receipt Date: 20181224
  Transmission Date: 20190205
  Serious: No
  Sender: FDA-Public Use
  Company Number: None

PATIENT
  Age: 62 Year
  Sex: Female
  Weight: 72.45 kg

DRUGS (11)
  1. GABAPENTIN. [Concomitant]
     Active Substance: GABAPENTIN
  2. LORAZAPAM [Concomitant]
     Active Substance: LORAZEPAM
  3. LOSARTIN POTASSIUM [Concomitant]
  4. TRADJENTA [Concomitant]
     Active Substance: LINAGLIPTIN
  5. METOPROLOL. [Concomitant]
     Active Substance: METOPROLOL
  6. TRAZODONE HYDROCHLORIDE. [Concomitant]
     Active Substance: TRAZODONE HYDROCHLORIDE
  7. LATUDA [Suspect]
     Active Substance: LURASIDONE HYDROCHLORIDE
     Indication: BIPOLAR DISORDER
     Dosage: ?          QUANTITY:30 TABLET(S);?
     Route: 048
     Dates: end: 20181220
  8. LEVEMIR [Suspect]
     Active Substance: INSULIN DETEMIR
  9. LAMOTRIGINE. [Concomitant]
     Active Substance: LAMOTRIGINE
  10. ADULT LOW DOSE ASPIRIN [Concomitant]
     Active Substance: ASPIRIN
  11. ATROVASTIN CALCIUM [Concomitant]

REACTIONS (4)
  - Blood glucose increased [None]
  - Dyskinesia [None]
  - Hypertension [None]
  - Somnolence [None]

NARRATIVE: CASE EVENT DATE: 20181017
